FAERS Safety Report 13611261 (Version 1)
Quarter: 2017Q2

REPORT INFORMATION
  Report Type: Spontaneous
  Country: US (occurrence: US)
  Receive Date: 20170604
  Receipt Date: 20170604
  Transmission Date: 20170830
  Serious: Yes (Disabling)
  Sender: FDA-Public Use
  Company Number: None

PATIENT
  Age: 36 Year
  Sex: Female
  Weight: 126.4 kg

DRUGS (5)
  1. LEVAQUIN [Suspect]
     Active Substance: LEVOFLOXACIN
     Indication: TONSILLAR INFLAMMATION
     Dosage: ?          QUANTITY:1 TABLET(S);?
     Route: 048
     Dates: start: 20170409, end: 20170429
  2. LISINOPRIL. [Concomitant]
     Active Substance: LISINOPRIL
  3. TRIVORA [Concomitant]
     Active Substance: ETHINYL ESTRADIOL\LEVONORGESTREL
  4. LEVAQUIN [Suspect]
     Active Substance: LEVOFLOXACIN
     Indication: DISEASE RECURRENCE
     Dosage: ?          QUANTITY:1 TABLET(S);?
     Route: 048
     Dates: start: 20170409, end: 20170429
  5. HCTZ [Concomitant]
     Active Substance: HYDROCHLOROTHIAZIDE

REACTIONS (7)
  - Arthralgia [None]
  - Tendon pain [None]
  - Abdominal pain upper [None]
  - Muscular weakness [None]
  - Fatigue [None]
  - Decreased appetite [None]
  - Depressed level of consciousness [None]

NARRATIVE: CASE EVENT DATE: 20170409
